FAERS Safety Report 10204169 (Version 2)
Quarter: 2014Q2

REPORT INFORMATION
  Report Type: Spontaneous
  Country: US (occurrence: US)
  Receive Date: 20140529
  Receipt Date: 20140624
  Transmission Date: 20141212
  Serious: No
  Sender: FDA-Public Use
  Company Number: US-B.I. PHARMACEUTICALS,INC./RIDGEFIELD-2014-BI-22166BP

PATIENT
  Age: 72 Year
  Sex: Female
  Weight: 91 kg

DRUGS (3)
  1. SPIRIVA [Suspect]
     Indication: CHRONIC OBSTRUCTIVE PULMONARY DISEASE
     Dosage: 18 MCG
     Route: 055
     Dates: start: 2013
  2. SPIRIVA [Suspect]
     Dosage: 18 MCG
     Route: 048
     Dates: start: 20140519, end: 20140519
  3. FORADIL [Concomitant]
     Route: 055

REACTIONS (3)
  - Incorrect route of drug administration [Recovered/Resolved]
  - Product quality issue [Unknown]
  - Product quality issue [Unknown]
